FAERS Safety Report 13021486 (Version 2)
Quarter: 2016Q4

REPORT INFORMATION
  Report Type: Spontaneous
  Country: JP (occurrence: JP)
  Receive Date: 20161213
  Receipt Date: 20161229
  Transmission Date: 20170207
  Serious: Yes (Life-Threatening, Other)
  Sender: FDA-Public Use
  Company Number: JP-APOTEX-2016AP008939

PATIENT
  Sex: Male
  Weight: 2.04 kg

DRUGS (1)
  1. PAXIL [Suspect]
     Active Substance: PAROXETINE HYDROCHLORIDE
     Indication: PRODUCT USED FOR UNKNOWN INDICATION
     Dosage: 40 MG, QD
     Route: 064
     Dates: end: 201610

REACTIONS (12)
  - Seizure [Unknown]
  - Drug withdrawal syndrome neonatal [Unknown]
  - Crying [Unknown]
  - Anger [Unknown]
  - Neonatal asphyxia [Recovering/Resolving]
  - Convulsion neonatal [Recovering/Resolving]
  - Incontinence [Unknown]
  - Foetal exposure during pregnancy [Unknown]
  - Blood magnesium increased [Unknown]
  - Loss of consciousness [Unknown]
  - Somnolence [Not Recovered/Not Resolved]
  - Blood phosphorus increased [Unknown]
